FAERS Safety Report 10193100 (Version 2)
Quarter: 2014Q2

REPORT INFORMATION
  Report Type: Spontaneous
  Country: US (occurrence: US)
  Receive Date: 20140524
  Receipt Date: 20140524
  Transmission Date: 20141212
  Serious: No
  Sender: FDA-Public Use
  Company Number: US-SANOFI-AVENTIS-2013SA029279

PATIENT
  Age: 78 Year
  Sex: Female
  Weight: 72.57 kg

DRUGS (6)
  1. LANTUS [Suspect]
     Indication: TYPE 2 DIABETES MELLITUS
     Dosage: DOSE:21 UNIT(S)
     Route: 051
     Dates: start: 201302
  2. LANTUS [Suspect]
     Indication: TYPE 2 DIABETES MELLITUS
     Dosage: DOSE:21 UNIT(S)
     Route: 051
     Dates: start: 201302
  3. NORVASC [Concomitant]
  4. METFORMIN [Concomitant]
  5. LEVOTHYROXINE [Concomitant]
  6. OMEGA 3 [Concomitant]

REACTIONS (8)
  - Hearing impaired [Unknown]
  - Muscle spasms [Unknown]
  - Injection site pain [Unknown]
  - Injection site haemorrhage [Not Recovered/Not Resolved]
  - Injection site pain [Unknown]
  - Blood glucose increased [Unknown]
  - Injection site swelling [Not Recovered/Not Resolved]
  - Blood glucose decreased [Unknown]
